FAERS Safety Report 25527369 (Version 1)
Quarter: 2025Q3

REPORT INFORMATION
  Report Type: Other
  Country: GB (occurrence: GB)
  Receive Date: 20250708
  Receipt Date: 20250708
  Transmission Date: 20251020
  Serious: Yes (Hospitalization, Disabling, Other)
  Sender: IPCA
  Company Number: GB-GSKCHJ-GB2018GSK240862AA

PATIENT

DRUGS (333)
  1. BISOPROLOL [Suspect]
     Active Substance: BISOPROLOL
     Indication: Product used for unknown indication
     Route: 048
  2. BISOPROLOL [Suspect]
     Active Substance: BISOPROLOL
     Indication: Cerebrovascular accident prophylaxis
     Route: 048
  3. BISOPROLOL [Suspect]
     Active Substance: BISOPROLOL
     Route: 065
  4. BISOPROLOL [Suspect]
     Active Substance: BISOPROLOL
     Route: 065
  5. BISOPROLOL [Suspect]
     Active Substance: BISOPROLOL
     Route: 065
  6. BISOPROLOL [Suspect]
     Active Substance: BISOPROLOL
     Route: 048
  7. BISOPROLOL [Suspect]
     Active Substance: BISOPROLOL
     Route: 065
  8. BISOPROLOL [Suspect]
     Active Substance: BISOPROLOL
     Route: 065
  9. BISOPROLOL [Suspect]
     Active Substance: BISOPROLOL
     Route: 048
  10. BISOPROLOL [Suspect]
     Active Substance: BISOPROLOL
     Route: 065
  11. BISOPROLOL [Suspect]
     Active Substance: BISOPROLOL
     Route: 065
  12. BISOPROLOL [Suspect]
     Active Substance: BISOPROLOL
     Route: 065
  13. BISOPROLOL [Suspect]
     Active Substance: BISOPROLOL
     Route: 048
  14. BISOPROLOL [Suspect]
     Active Substance: BISOPROLOL
     Route: 065
     Dates: end: 20180207
  15. BISOPROLOL [Suspect]
     Active Substance: BISOPROLOL
     Route: 065
  16. BISOPROLOL [Suspect]
     Active Substance: BISOPROLOL
     Route: 048
  17. BISOPROLOL [Suspect]
     Active Substance: BISOPROLOL
     Route: 048
  18. BISOPROLOL [Suspect]
     Active Substance: BISOPROLOL
  19. BISOPROLOL [Suspect]
     Active Substance: BISOPROLOL
     Route: 048
  20. BISOPROLOL [Suspect]
     Active Substance: BISOPROLOL
     Route: 048
  21. BISOPROLOL [Suspect]
     Active Substance: BISOPROLOL
  22. BISOPROLOL [Suspect]
     Active Substance: BISOPROLOL
  23. BISOPROLOL [Suspect]
     Active Substance: BISOPROLOL
  24. BISOPROLOL [Suspect]
     Active Substance: BISOPROLOL
  25. BISOPROLOL [Suspect]
     Active Substance: BISOPROLOL
  26. BISOPROLOL [Suspect]
     Active Substance: BISOPROLOL
  27. BISOPROLOL [Suspect]
     Active Substance: BISOPROLOL
     Route: 048
     Dates: end: 20180207
  28. BISOPROLOL [Suspect]
     Active Substance: BISOPROLOL
     Route: 048
     Dates: end: 20180207
  29. BISOPROLOL [Suspect]
     Active Substance: BISOPROLOL
  30. BISOPROLOL [Suspect]
     Active Substance: BISOPROLOL
     Dates: end: 20180207
  31. BISOPROLOL [Suspect]
     Active Substance: BISOPROLOL
  32. BISOPROLOL [Suspect]
     Active Substance: BISOPROLOL
     Dates: end: 20180207
  33. BISOPROLOL [Suspect]
     Active Substance: BISOPROLOL
     Dates: end: 20180207
  34. BISOPROLOL [Suspect]
     Active Substance: BISOPROLOL
  35. BISOPROLOL [Suspect]
     Active Substance: BISOPROLOL
     Route: 048
  36. BISOPROLOL [Suspect]
     Active Substance: BISOPROLOL
     Route: 048
     Dates: end: 20180207
  37. BISOPROLOL [Suspect]
     Active Substance: BISOPROLOL
     Route: 048
     Dates: end: 20180207
  38. BISOPROLOL [Suspect]
     Active Substance: BISOPROLOL
  39. BISOPROLOL [Suspect]
     Active Substance: BISOPROLOL
  40. BISOPROLOL [Suspect]
     Active Substance: BISOPROLOL
     Route: 048
     Dates: end: 20180207
  41. BISOPROLOL [Suspect]
     Active Substance: BISOPROLOL
     Route: 048
     Dates: end: 20180207
  42. BISOPROLOL [Suspect]
     Active Substance: BISOPROLOL
     Route: 048
  43. BISOPROLOL [Suspect]
     Active Substance: BISOPROLOL
     Route: 048
  44. BISOPROLOL [Suspect]
     Active Substance: BISOPROLOL
     Route: 048
  45. BISOPROLOL [Suspect]
     Active Substance: BISOPROLOL
  46. BISOPROLOL [Suspect]
     Active Substance: BISOPROLOL
  47. SIMVASTATIN [Suspect]
     Active Substance: SIMVASTATIN
     Indication: Product used for unknown indication
     Route: 065
  48. SIMVASTATIN [Suspect]
     Active Substance: SIMVASTATIN
     Route: 065
  49. SIMVASTATIN [Suspect]
     Active Substance: SIMVASTATIN
     Route: 065
  50. SIMVASTATIN [Suspect]
     Active Substance: SIMVASTATIN
     Route: 065
  51. SIMVASTATIN [Suspect]
     Active Substance: SIMVASTATIN
     Route: 065
  52. SIMVASTATIN [Suspect]
     Active Substance: SIMVASTATIN
     Route: 065
  53. SIMVASTATIN [Suspect]
     Active Substance: SIMVASTATIN
     Route: 065
  54. SIMVASTATIN [Suspect]
     Active Substance: SIMVASTATIN
     Route: 065
  55. SIMVASTATIN [Suspect]
     Active Substance: SIMVASTATIN
     Route: 065
  56. SIMVASTATIN [Suspect]
     Active Substance: SIMVASTATIN
     Route: 065
  57. SIMVASTATIN [Suspect]
     Active Substance: SIMVASTATIN
     Route: 048
  58. SIMVASTATIN [Suspect]
     Active Substance: SIMVASTATIN
     Route: 048
  59. SIMVASTATIN [Suspect]
     Active Substance: SIMVASTATIN
     Route: 065
  60. HYDROCHLOROTHIAZIDE [Suspect]
     Active Substance: HYDROCHLOROTHIAZIDE
     Indication: Cerebrovascular accident prophylaxis
     Route: 048
  61. HYDROCHLOROTHIAZIDE [Suspect]
     Active Substance: HYDROCHLOROTHIAZIDE
     Route: 048
  62. HYDROCHLOROTHIAZIDE [Suspect]
     Active Substance: HYDROCHLOROTHIAZIDE
     Route: 048
  63. HYDROCHLOROTHIAZIDE [Suspect]
     Active Substance: HYDROCHLOROTHIAZIDE
     Route: 048
  64. HYDROCHLOROTHIAZIDE [Suspect]
     Active Substance: HYDROCHLOROTHIAZIDE
     Route: 048
  65. HYDROCHLOROTHIAZIDE [Suspect]
     Active Substance: HYDROCHLOROTHIAZIDE
     Route: 048
  66. HYDROCHLOROTHIAZIDE [Suspect]
     Active Substance: HYDROCHLOROTHIAZIDE
     Route: 048
  67. HYDROCHLOROTHIAZIDE [Suspect]
     Active Substance: HYDROCHLOROTHIAZIDE
     Route: 048
  68. HYDROCHLOROTHIAZIDE [Suspect]
     Active Substance: HYDROCHLOROTHIAZIDE
     Route: 048
  69. HYDROCHLOROTHIAZIDE [Suspect]
     Active Substance: HYDROCHLOROTHIAZIDE
     Route: 048
  70. HYDROCHLOROTHIAZIDE [Suspect]
     Active Substance: HYDROCHLOROTHIAZIDE
     Route: 048
  71. HYDROCHLOROTHIAZIDE [Suspect]
     Active Substance: HYDROCHLOROTHIAZIDE
     Route: 048
  72. HYDROCHLOROTHIAZIDE [Suspect]
     Active Substance: HYDROCHLOROTHIAZIDE
  73. CETIRIZINE [Suspect]
     Active Substance: CETIRIZINE HYDROCHLORIDE
     Indication: Product used for unknown indication
     Route: 048
  74. CETIRIZINE [Suspect]
     Active Substance: CETIRIZINE HYDROCHLORIDE
     Route: 048
  75. CETIRIZINE [Suspect]
     Active Substance: CETIRIZINE HYDROCHLORIDE
  76. CETIRIZINE [Suspect]
     Active Substance: CETIRIZINE HYDROCHLORIDE
  77. CETIRIZINE [Suspect]
     Active Substance: CETIRIZINE HYDROCHLORIDE
  78. CETIRIZINE [Suspect]
     Active Substance: CETIRIZINE HYDROCHLORIDE
     Route: 048
  79. NEXIUM [Suspect]
     Active Substance: ESOMEPRAZOLE MAGNESIUM
     Indication: Reflux laryngitis
  80. ASTRAZENECA COVID-19 VACCINE [Suspect]
     Active Substance: AZD-1222
     Indication: Product used for unknown indication
  81. ASTRAZENECA COVID-19 VACCINE [Suspect]
     Active Substance: AZD-1222
  82. CANDESARTAN CILEXETIL [Suspect]
     Active Substance: CANDESARTAN CILEXETIL
     Indication: Product used for unknown indication
     Route: 048
  83. CANDESARTAN CILEXETIL [Suspect]
     Active Substance: CANDESARTAN CILEXETIL
     Route: 048
  84. CANDESARTAN CILEXETIL [Suspect]
     Active Substance: CANDESARTAN CILEXETIL
     Route: 048
  85. CANDESARTAN CILEXETIL [Suspect]
     Active Substance: CANDESARTAN CILEXETIL
  86. CANDESARTAN CILEXETIL [Suspect]
     Active Substance: CANDESARTAN CILEXETIL
     Route: 048
     Dates: end: 20230316
  87. CANDESARTAN CILEXETIL [Suspect]
     Active Substance: CANDESARTAN CILEXETIL
  88. CANDESARTAN CILEXETIL [Suspect]
     Active Substance: CANDESARTAN CILEXETIL
     Route: 048
  89. CANDESARTAN CILEXETIL [Suspect]
     Active Substance: CANDESARTAN CILEXETIL
  90. CANDESARTAN CILEXETIL [Suspect]
     Active Substance: CANDESARTAN CILEXETIL
     Route: 048
  91. CANDESARTAN CILEXETIL [Suspect]
     Active Substance: CANDESARTAN CILEXETIL
     Route: 048
  92. CANDESARTAN CILEXETIL [Suspect]
     Active Substance: CANDESARTAN CILEXETIL
     Route: 048
  93. CANDESARTAN CILEXETIL [Suspect]
     Active Substance: CANDESARTAN CILEXETIL
  94. CANDESARTAN CILEXETIL [Suspect]
     Active Substance: CANDESARTAN CILEXETIL
     Route: 048
  95. CANDESARTAN CILEXETIL [Suspect]
     Active Substance: CANDESARTAN CILEXETIL
     Route: 048
  96. CANDESARTAN CILEXETIL [Suspect]
     Active Substance: CANDESARTAN CILEXETIL
     Route: 048
  97. CANDESARTAN CILEXETIL [Suspect]
     Active Substance: CANDESARTAN CILEXETIL
     Route: 048
  98. CANDESARTAN CILEXETIL [Suspect]
     Active Substance: CANDESARTAN CILEXETIL
     Route: 048
  99. CANDESARTAN CILEXETIL [Suspect]
     Active Substance: CANDESARTAN CILEXETIL
     Route: 048
  100. CANDESARTAN CILEXETIL [Suspect]
     Active Substance: CANDESARTAN CILEXETIL
     Route: 048
  101. CANDESARTAN CILEXETIL [Suspect]
     Active Substance: CANDESARTAN CILEXETIL
     Route: 048
  102. CANDESARTAN CILEXETIL [Suspect]
     Active Substance: CANDESARTAN CILEXETIL
     Route: 048
  103. CANDESARTAN CILEXETIL [Suspect]
     Active Substance: CANDESARTAN CILEXETIL
     Route: 048
  104. CANDESARTAN CILEXETIL [Suspect]
     Active Substance: CANDESARTAN CILEXETIL
     Route: 048
  105. DAPAGLIFLOZIN [Suspect]
     Active Substance: DAPAGLIFLOZIN
     Indication: Product used for unknown indication
     Route: 048
  106. LEVOTHYROXINE [Suspect]
     Active Substance: LEVOTHYROXINE
     Indication: Product used for unknown indication
     Route: 048
  107. LEVOTHYROXINE [Suspect]
     Active Substance: LEVOTHYROXINE
     Route: 048
  108. LEVOTHYROXINE [Suspect]
     Active Substance: LEVOTHYROXINE
  109. LEVOTHYROXINE [Suspect]
     Active Substance: LEVOTHYROXINE
  110. LEVOTHYROXINE [Suspect]
     Active Substance: LEVOTHYROXINE
  111. LEVOTHYROXINE [Suspect]
     Active Substance: LEVOTHYROXINE
  112. LEVOTHYROXINE [Suspect]
     Active Substance: LEVOTHYROXINE
  113. LEVOTHYROXINE [Suspect]
     Active Substance: LEVOTHYROXINE
  114. LEVOTHYROXINE [Suspect]
     Active Substance: LEVOTHYROXINE
     Route: 066
  115. LEVOTHYROXINE [Suspect]
     Active Substance: LEVOTHYROXINE
  116. LEVOTHYROXINE [Suspect]
     Active Substance: LEVOTHYROXINE
  117. LEVOTHYROXINE [Suspect]
     Active Substance: LEVOTHYROXINE
  118. LEVOTHYROXINE [Suspect]
     Active Substance: LEVOTHYROXINE
     Route: 048
  119. LEVOTHYROXINE [Suspect]
     Active Substance: LEVOTHYROXINE
  120. LEVOTHYROXINE [Suspect]
     Active Substance: LEVOTHYROXINE
  121. LEVOTHYROXINE [Suspect]
     Active Substance: LEVOTHYROXINE
  122. LEVOTHYROXINE [Suspect]
     Active Substance: LEVOTHYROXINE
  123. LEVOTHYROXINE [Suspect]
     Active Substance: LEVOTHYROXINE
  124. LEVOTHYROXINE [Suspect]
     Active Substance: LEVOTHYROXINE
     Route: 066
  125. LEVOTHYROXINE [Suspect]
     Active Substance: LEVOTHYROXINE
  126. LEVOTHYROXINE [Suspect]
     Active Substance: LEVOTHYROXINE
  127. LEVOTHYROXINE [Suspect]
     Active Substance: LEVOTHYROXINE
  128. LEVOTHYROXINE [Suspect]
     Active Substance: LEVOTHYROXINE
     Route: 048
  129. LEVOTHYROXINE [Suspect]
     Active Substance: LEVOTHYROXINE
  130. LEVOTHYROXINE [Suspect]
     Active Substance: LEVOTHYROXINE
  131. LEVOTHYROXINE [Suspect]
     Active Substance: LEVOTHYROXINE
  132. LEVOTHYROXINE [Suspect]
     Active Substance: LEVOTHYROXINE
  133. LEVOTHYROXINE [Suspect]
     Active Substance: LEVOTHYROXINE
  134. LEVOTHYROXINE [Suspect]
     Active Substance: LEVOTHYROXINE
  135. LEVOTHYROXINE [Suspect]
     Active Substance: LEVOTHYROXINE
  136. LEVOTHYROXINE [Suspect]
     Active Substance: LEVOTHYROXINE
  137. LEVOTHYROXINE [Suspect]
     Active Substance: LEVOTHYROXINE
  138. LEVOTHYROXINE [Suspect]
     Active Substance: LEVOTHYROXINE
  139. LEVOTHYROXINE [Suspect]
     Active Substance: LEVOTHYROXINE
  140. LEVOTHYROXINE [Suspect]
     Active Substance: LEVOTHYROXINE
  141. LEVOTHYROXINE [Suspect]
     Active Substance: LEVOTHYROXINE
  142. LEVOTHYROXINE [Suspect]
     Active Substance: LEVOTHYROXINE
  143. ELIQUIS [Suspect]
     Active Substance: APIXABAN
     Indication: Cerebrovascular accident prophylaxis
  144. ELIQUIS [Suspect]
     Active Substance: APIXABAN
     Indication: Product used for unknown indication
     Dates: end: 20180207
  145. ELIQUIS [Suspect]
     Active Substance: APIXABAN
     Indication: Atrial fibrillation
     Route: 042
  146. ELIQUIS [Suspect]
     Active Substance: APIXABAN
  147. ELIQUIS [Suspect]
     Active Substance: APIXABAN
     Route: 048
  148. ELIQUIS [Suspect]
     Active Substance: APIXABAN
  149. ELIQUIS [Suspect]
     Active Substance: APIXABAN
     Route: 042
  150. ELIQUIS [Suspect]
     Active Substance: APIXABAN
  151. ELIQUIS [Suspect]
     Active Substance: APIXABAN
  152. ELIQUIS [Suspect]
     Active Substance: APIXABAN
     Route: 042
  153. ELIQUIS [Suspect]
     Active Substance: APIXABAN
  154. DIGOXIN [Suspect]
     Active Substance: DIGOXIN
     Indication: Cerebrovascular accident prophylaxis
     Route: 048
  155. DIGOXIN [Suspect]
     Active Substance: DIGOXIN
  156. DIGOXIN [Suspect]
     Active Substance: DIGOXIN
     Route: 048
  157. DIGOXIN [Suspect]
     Active Substance: DIGOXIN
  158. DIGOXIN [Suspect]
     Active Substance: DIGOXIN
  159. DIGOXIN [Suspect]
     Active Substance: DIGOXIN
     Route: 048
  160. DIGOXIN [Suspect]
     Active Substance: DIGOXIN
  161. DIGOXIN [Suspect]
     Active Substance: DIGOXIN
  162. DIGOXIN [Suspect]
     Active Substance: DIGOXIN
  163. DIGOXIN [Suspect]
     Active Substance: DIGOXIN
  164. DIGOXIN [Suspect]
     Active Substance: DIGOXIN
  165. DIGOXIN [Suspect]
     Active Substance: DIGOXIN
  166. DIGOXIN [Suspect]
     Active Substance: DIGOXIN
     Route: 048
  167. DIGOXIN [Suspect]
     Active Substance: DIGOXIN
     Route: 048
  168. DIGOXIN [Suspect]
     Active Substance: DIGOXIN
  169. DIGOXIN [Suspect]
     Active Substance: DIGOXIN
  170. DIGOXIN [Suspect]
     Active Substance: DIGOXIN
     Route: 048
  171. DIGOXIN [Suspect]
     Active Substance: DIGOXIN
  172. DIGOXIN [Suspect]
     Active Substance: DIGOXIN
  173. DIGOXIN [Suspect]
     Active Substance: DIGOXIN
  174. DIGOXIN [Suspect]
     Active Substance: DIGOXIN
  175. DIGOXIN [Suspect]
     Active Substance: DIGOXIN
  176. DIGOXIN [Suspect]
     Active Substance: DIGOXIN
  177. DIGOXIN [Suspect]
     Active Substance: DIGOXIN
     Route: 048
  178. DIGOXIN [Suspect]
     Active Substance: DIGOXIN
  179. IMDUR [Suspect]
     Active Substance: ISOSORBIDE MONONITRATE
     Indication: Coronary artery disease
     Route: 048
  180. IMDUR [Suspect]
     Active Substance: ISOSORBIDE MONONITRATE
     Route: 048
  181. IMDUR [Suspect]
     Active Substance: ISOSORBIDE MONONITRATE
     Route: 048
  182. IMDUR [Suspect]
     Active Substance: ISOSORBIDE MONONITRATE
     Route: 048
  183. IMDUR [Suspect]
     Active Substance: ISOSORBIDE MONONITRATE
     Route: 048
  184. IMDUR [Suspect]
     Active Substance: ISOSORBIDE MONONITRATE
     Route: 048
  185. IMDUR [Suspect]
     Active Substance: ISOSORBIDE MONONITRATE
     Route: 048
  186. IMDUR [Suspect]
     Active Substance: ISOSORBIDE MONONITRATE
     Route: 048
  187. IMDUR [Suspect]
     Active Substance: ISOSORBIDE MONONITRATE
     Route: 048
  188. IMDUR [Suspect]
     Active Substance: ISOSORBIDE MONONITRATE
     Route: 048
  189. IMDUR [Suspect]
     Active Substance: ISOSORBIDE MONONITRATE
     Route: 048
  190. IMDUR [Suspect]
     Active Substance: ISOSORBIDE MONONITRATE
     Route: 048
  191. IMDUR [Suspect]
     Active Substance: ISOSORBIDE MONONITRATE
     Route: 048
  192. IMDUR [Suspect]
     Active Substance: ISOSORBIDE MONONITRATE
     Route: 048
  193. IMDUR [Suspect]
     Active Substance: ISOSORBIDE MONONITRATE
     Route: 048
  194. IMDUR [Suspect]
     Active Substance: ISOSORBIDE MONONITRATE
     Route: 048
  195. IMDUR [Suspect]
     Active Substance: ISOSORBIDE MONONITRATE
     Route: 048
  196. IMDUR [Suspect]
     Active Substance: ISOSORBIDE MONONITRATE
     Route: 048
  197. IMDUR [Suspect]
     Active Substance: ISOSORBIDE MONONITRATE
     Route: 048
  198. IMDUR [Suspect]
     Active Substance: ISOSORBIDE MONONITRATE
     Route: 048
  199. IMDUR [Suspect]
     Active Substance: ISOSORBIDE MONONITRATE
     Route: 048
  200. IMDUR [Suspect]
     Active Substance: ISOSORBIDE MONONITRATE
     Route: 048
  201. IMDUR [Suspect]
     Active Substance: ISOSORBIDE MONONITRATE
     Route: 048
  202. IMDUR [Suspect]
     Active Substance: ISOSORBIDE MONONITRATE
     Route: 048
  203. IMDUR [Suspect]
     Active Substance: ISOSORBIDE MONONITRATE
     Route: 048
  204. IMDUR [Suspect]
     Active Substance: ISOSORBIDE MONONITRATE
     Route: 048
  205. IMDUR [Suspect]
     Active Substance: ISOSORBIDE MONONITRATE
  206. IMDUR [Suspect]
     Active Substance: ISOSORBIDE MONONITRATE
     Route: 048
  207. IMDUR [Suspect]
     Active Substance: ISOSORBIDE MONONITRATE
  208. LANSOPRAZOLE [Suspect]
     Active Substance: LANSOPRAZOLE
     Indication: Atrial fibrillation
  209. LANSOPRAZOLE [Suspect]
     Active Substance: LANSOPRAZOLE
  210. LANSOPRAZOLE [Suspect]
     Active Substance: LANSOPRAZOLE
  211. LANSOPRAZOLE [Suspect]
     Active Substance: LANSOPRAZOLE
  212. LANSOPRAZOLE [Suspect]
     Active Substance: LANSOPRAZOLE
  213. LANSOPRAZOLE [Suspect]
     Active Substance: LANSOPRAZOLE
  214. LANSOPRAZOLE [Suspect]
     Active Substance: LANSOPRAZOLE
  215. LANSOPRAZOLE [Suspect]
     Active Substance: LANSOPRAZOLE
     Dates: end: 20180218
  216. LANSOPRAZOLE [Suspect]
     Active Substance: LANSOPRAZOLE
  217. LANSOPRAZOLE [Suspect]
     Active Substance: LANSOPRAZOLE
  218. LANSOPRAZOLE [Suspect]
     Active Substance: LANSOPRAZOLE
     Dates: end: 20180207
  219. LANSOPRAZOLE [Suspect]
     Active Substance: LANSOPRAZOLE
     Dates: end: 20180207
  220. LANSOPRAZOLE [Suspect]
     Active Substance: LANSOPRAZOLE
     Dates: end: 20180207
  221. LANSOPRAZOLE [Suspect]
     Active Substance: LANSOPRAZOLE
  222. LANSOPRAZOLE [Suspect]
     Active Substance: LANSOPRAZOLE
     Dates: end: 20180207
  223. ISOSORBIDE DINITRATE [Suspect]
     Active Substance: ISOSORBIDE DINITRATE
     Indication: Product used for unknown indication
  224. ISOSORBIDE DINITRATE [Suspect]
     Active Substance: ISOSORBIDE DINITRATE
     Route: 048
  225. ISOSORBIDE DINITRATE [Suspect]
     Active Substance: ISOSORBIDE DINITRATE
  226. ISOSORBIDE DINITRATE [Suspect]
     Active Substance: ISOSORBIDE DINITRATE
  227. ISOSORBIDE DINITRATE [Suspect]
     Active Substance: ISOSORBIDE DINITRATE
     Route: 048
  228. ISOSORBIDE DINITRATE [Suspect]
     Active Substance: ISOSORBIDE DINITRATE
  229. ISOSORBIDE DINITRATE [Suspect]
     Active Substance: ISOSORBIDE DINITRATE
  230. ISOSORBIDE DINITRATE [Suspect]
     Active Substance: ISOSORBIDE DINITRATE
  231. ISOSORBIDE DINITRATE [Suspect]
     Active Substance: ISOSORBIDE DINITRATE
     Route: 048
  232. ISOSORBIDE DINITRATE [Suspect]
     Active Substance: ISOSORBIDE DINITRATE
     Route: 048
  233. ISOSORBIDE DINITRATE [Suspect]
     Active Substance: ISOSORBIDE DINITRATE
  234. ISOSORBIDE DINITRATE [Suspect]
     Active Substance: ISOSORBIDE DINITRATE
     Route: 048
  235. ISOSORBIDE DINITRATE [Suspect]
     Active Substance: ISOSORBIDE DINITRATE
  236. ISOSORBIDE DINITRATE [Suspect]
     Active Substance: ISOSORBIDE DINITRATE
  237. ISOSORBIDE DINITRATE [Suspect]
     Active Substance: ISOSORBIDE DINITRATE
  238. LINAGLIPTIN [Suspect]
     Active Substance: LINAGLIPTIN
     Indication: Product used for unknown indication
  239. LINAGLIPTIN [Suspect]
     Active Substance: LINAGLIPTIN
  240. LINAGLIPTIN [Suspect]
     Active Substance: LINAGLIPTIN
  241. LINAGLIPTIN [Suspect]
     Active Substance: LINAGLIPTIN
  242. LINAGLIPTIN [Suspect]
     Active Substance: LINAGLIPTIN
  243. LINAGLIPTIN [Suspect]
     Active Substance: LINAGLIPTIN
  244. LINAGLIPTIN [Suspect]
     Active Substance: LINAGLIPTIN
  245. APIXABAN [Suspect]
     Active Substance: APIXABAN
     Indication: Atrial fibrillation
     Dates: end: 20180207
  246. APIXABAN [Suspect]
     Active Substance: APIXABAN
     Indication: Product used for unknown indication
     Dates: end: 20180207
  247. APIXABAN [Suspect]
     Active Substance: APIXABAN
     Indication: Cerebrovascular accident prophylaxis
     Route: 042
     Dates: end: 20180207
  248. APIXABAN [Suspect]
     Active Substance: APIXABAN
     Dates: end: 20180207
  249. APIXABAN [Suspect]
     Active Substance: APIXABAN
     Route: 042
     Dates: end: 20180207
  250. APIXABAN [Suspect]
     Active Substance: APIXABAN
     Dates: end: 20180207
  251. APIXABAN [Suspect]
     Active Substance: APIXABAN
  252. APIXABAN [Suspect]
     Active Substance: APIXABAN
     Dates: end: 20180207
  253. APIXABAN [Suspect]
     Active Substance: APIXABAN
  254. APIXABAN [Suspect]
     Active Substance: APIXABAN
     Dates: end: 20180207
  255. APIXABAN [Suspect]
     Active Substance: APIXABAN
     Route: 048
  256. APIXABAN [Suspect]
     Active Substance: APIXABAN
     Route: 042
     Dates: end: 20180207
  257. APIXABAN [Suspect]
     Active Substance: APIXABAN
  258. APIXABAN [Suspect]
     Active Substance: APIXABAN
     Dates: end: 20180207
  259. APIXABAN [Suspect]
     Active Substance: APIXABAN
     Route: 042
  260. APIXABAN [Suspect]
     Active Substance: APIXABAN
     Dates: end: 20180207
  261. APIXABAN [Suspect]
     Active Substance: APIXABAN
  262. APIXABAN [Suspect]
     Active Substance: APIXABAN
     Dates: end: 20180207
  263. APIXABAN [Suspect]
     Active Substance: APIXABAN
     Dates: end: 20180207
  264. APIXABAN [Suspect]
     Active Substance: APIXABAN
     Dates: end: 20180207
  265. APIXABAN [Suspect]
     Active Substance: APIXABAN
     Route: 048
     Dates: end: 20180207
  266. APIXABAN [Suspect]
     Active Substance: APIXABAN
     Route: 042
     Dates: end: 20180207
  267. APIXABAN [Suspect]
     Active Substance: APIXABAN
     Route: 048
  268. APIXABAN [Suspect]
     Active Substance: APIXABAN
     Dates: end: 20180207
  269. APIXABAN [Suspect]
     Active Substance: APIXABAN
     Route: 048
  270. APIXABAN [Suspect]
     Active Substance: APIXABAN
     Dates: end: 20180207
  271. APIXABAN [Suspect]
     Active Substance: APIXABAN
     Dates: end: 20180207
  272. APIXABAN [Suspect]
     Active Substance: APIXABAN
     Dates: end: 20180207
  273. APIXABAN [Suspect]
     Active Substance: APIXABAN
     Route: 048
     Dates: end: 20180207
  274. APIXABAN [Suspect]
     Active Substance: APIXABAN
     Dates: end: 20180207
  275. APIXABAN [Suspect]
     Active Substance: APIXABAN
     Dates: end: 20180207
  276. APIXABAN [Suspect]
     Active Substance: APIXABAN
     Dates: end: 20180207
  277. APIXABAN [Suspect]
     Active Substance: APIXABAN
  278. APIXABAN [Suspect]
     Active Substance: APIXABAN
     Route: 042
  279. APIXABAN [Suspect]
     Active Substance: APIXABAN
     Dates: end: 20180207
  280. APIXABAN [Suspect]
     Active Substance: APIXABAN
     Route: 042
  281. APIXABAN [Suspect]
     Active Substance: APIXABAN
     Route: 048
     Dates: end: 20180207
  282. APIXABAN [Suspect]
     Active Substance: APIXABAN
     Dates: end: 20180207
  283. APIXABAN [Suspect]
     Active Substance: APIXABAN
  284. APIXABAN [Suspect]
     Active Substance: APIXABAN
     Route: 048
  285. APIXABAN [Suspect]
     Active Substance: APIXABAN
  286. APIXABAN [Suspect]
     Active Substance: APIXABAN
     Route: 048
     Dates: end: 20180207
  287. APIXABAN [Suspect]
     Active Substance: APIXABAN
     Dates: end: 20180207
  288. APIXABAN [Suspect]
     Active Substance: APIXABAN
     Route: 042
     Dates: end: 20180207
  289. ZOCOR [Suspect]
     Active Substance: SIMVASTATIN
     Indication: Product used for unknown indication
  290. ZOCOR [Suspect]
     Active Substance: SIMVASTATIN
  291. ZOCOR [Suspect]
     Active Substance: SIMVASTATIN
  292. ZOCOR [Suspect]
     Active Substance: SIMVASTATIN
  293. ZOCOR [Suspect]
     Active Substance: SIMVASTATIN
  294. ZOCOR [Suspect]
     Active Substance: SIMVASTATIN
  295. ZOCOR [Suspect]
     Active Substance: SIMVASTATIN
  296. FELODIPINE [Suspect]
     Active Substance: FELODIPINE
     Indication: Blood pressure measurement
  297. ISOSORBIDE MONONITRATE [Suspect]
     Active Substance: ISOSORBIDE MONONITRATE
     Indication: Coronary artery disease
     Route: 048
  298. ISOSORBIDE MONONITRATE [Suspect]
     Active Substance: ISOSORBIDE MONONITRATE
     Indication: Product used for unknown indication
     Route: 048
  299. ISOSORBIDE MONONITRATE [Suspect]
     Active Substance: ISOSORBIDE MONONITRATE
     Route: 048
  300. ISOSORBIDE MONONITRATE [Suspect]
     Active Substance: ISOSORBIDE MONONITRATE
     Route: 048
  301. ISOSORBIDE MONONITRATE [Suspect]
     Active Substance: ISOSORBIDE MONONITRATE
     Route: 048
  302. CETIRIZINE HYDROCHLORIDE [Suspect]
     Active Substance: CETIRIZINE HYDROCHLORIDE
     Indication: Product used for unknown indication
     Route: 048
  303. CETIRIZINE HYDROCHLORIDE [Suspect]
     Active Substance: CETIRIZINE HYDROCHLORIDE
  304. CETIRIZINE HYDROCHLORIDE [Suspect]
     Active Substance: CETIRIZINE HYDROCHLORIDE
     Route: 048
  305. CETIRIZINE HYDROCHLORIDE [Suspect]
     Active Substance: CETIRIZINE HYDROCHLORIDE
     Route: 048
  306. CETIRIZINE HYDROCHLORIDE [Suspect]
     Active Substance: CETIRIZINE HYDROCHLORIDE
     Route: 048
  307. CETIRIZINE HYDROCHLORIDE [Suspect]
     Active Substance: CETIRIZINE HYDROCHLORIDE
     Route: 048
  308. CETIRIZINE HYDROCHLORIDE [Suspect]
     Active Substance: CETIRIZINE HYDROCHLORIDE
     Route: 048
  309. CETIRIZINE HYDROCHLORIDE [Suspect]
     Active Substance: CETIRIZINE HYDROCHLORIDE
  310. CETIRIZINE HYDROCHLORIDE [Suspect]
     Active Substance: CETIRIZINE HYDROCHLORIDE
  311. CETIRIZINE HYDROCHLORIDE [Suspect]
     Active Substance: CETIRIZINE HYDROCHLORIDE
     Route: 048
  312. CETIRIZINE HYDROCHLORIDE [Suspect]
     Active Substance: CETIRIZINE HYDROCHLORIDE
     Route: 048
  313. CETIRIZINE HYDROCHLORIDE [Suspect]
     Active Substance: CETIRIZINE HYDROCHLORIDE
     Route: 048
  314. CETIRIZINE HYDROCHLORIDE [Suspect]
     Active Substance: CETIRIZINE HYDROCHLORIDE
     Route: 048
  315. CETIRIZINE HYDROCHLORIDE [Suspect]
     Active Substance: CETIRIZINE HYDROCHLORIDE
     Route: 048
  316. LINAGLIPTIN [Suspect]
     Active Substance: LINAGLIPTIN
     Indication: Product used for unknown indication
  317. LINAGLIPTIN [Suspect]
     Active Substance: LINAGLIPTIN
  318. LINAGLIPTIN [Suspect]
     Active Substance: LINAGLIPTIN
  319. LINAGLIPTIN [Suspect]
     Active Substance: LINAGLIPTIN
  320. LINAGLIPTIN [Suspect]
     Active Substance: LINAGLIPTIN
  321. LINAGLIPTIN [Suspect]
     Active Substance: LINAGLIPTIN
  322. LINAGLIPTIN [Suspect]
     Active Substance: LINAGLIPTIN
  323. LINAGLIPTIN [Suspect]
     Active Substance: LINAGLIPTIN
  324. LINAGLIPTIN [Suspect]
     Active Substance: LINAGLIPTIN
  325. LINAGLIPTIN [Suspect]
     Active Substance: LINAGLIPTIN
  326. NAPROXEN [Suspect]
     Active Substance: NAPROXEN
     Indication: Product used for unknown indication
  327. FOSFOMYCIN [Concomitant]
     Active Substance: FOSFOMYCIN
     Indication: Product used for unknown indication
     Dates: end: 20230228
  328. BENDROFLUMETHIAZIDE [Concomitant]
     Active Substance: BENDROFLUMETHIAZIDE
     Indication: Product used for unknown indication
  329. ASPIRIN [Concomitant]
     Active Substance: ASPIRIN
     Indication: Product used for unknown indication
  330. ESTRIOL [Concomitant]
     Active Substance: ESTRIOL
     Indication: Product used for unknown indication
  331. AMITRIPTYLINE HYDROCHLORIDE [Concomitant]
     Active Substance: AMITRIPTYLINE HYDROCHLORIDE
     Indication: Product used for unknown indication
  332. BUMETANIDE [Concomitant]
     Active Substance: BUMETANIDE
     Indication: Product used for unknown indication
     Route: 048
     Dates: end: 20230217
  333. OMEPRAZOLE [Concomitant]
     Active Substance: OMEPRAZOLE
     Indication: Product used for unknown indication

REACTIONS (45)
  - Subarachnoid haemorrhage [None]
  - Off label use [Unknown]
  - Blood glucose increased [Unknown]
  - Back pain [Unknown]
  - Abdominal pain upper [Unknown]
  - Hyperhidrosis [Unknown]
  - Ventricular tachycardia [Not Recovered/Not Resolved]
  - Myocardial infarction [Recovered/Resolved]
  - Transient ischaemic attack [Recovered/Resolved]
  - Pericarditis [Not Recovered/Not Resolved]
  - Hallucination [Recovered/Resolved]
  - Blindness [Recovered/Resolved]
  - Carotid artery occlusion [Recovered/Resolved]
  - Angioedema [Recovered/Resolved]
  - Vasculitis [Not Recovered/Not Resolved]
  - Pain of skin [Recovered/Resolved]
  - Facial pain [Recovered/Resolved]
  - Insomnia [Unknown]
  - Palmoplantar keratoderma [Not Recovered/Not Resolved]
  - Anxiety [Not Recovered/Not Resolved]
  - Pruritus genital [Recovered/Resolved]
  - Rash [Recovering/Resolving]
  - Sleep terror [Recovered/Resolved]
  - Pruritus [Recovering/Resolving]
  - Eye pruritus [Recovered/Resolved]
  - Alopecia [None]
  - Tinnitus [Not Recovered/Not Resolved]
  - Diarrhoea [Recovered/Resolved]
  - Arthralgia [Recovered/Resolved]
  - Visual impairment [Not Recovered/Not Resolved]
  - Peripheral swelling [Recovered/Resolved]
  - Lip swelling [Recovering/Resolving]
  - Atrial tachycardia [Not Recovered/Not Resolved]
  - Muscle twitching [Unknown]
  - Cardiospasm [Not Recovered/Not Resolved]
  - Amnesia [Not Recovered/Not Resolved]
  - Diplopia [Not Recovered/Not Resolved]
  - COVID-19 [None]
  - Immunisation [Recovered/Resolved]
  - Medication error [Unknown]
  - Intentional product use issue [Unknown]
  - Intentional product misuse [Unknown]
  - Product use issue [Unknown]
  - Incorrect product administration duration [Unknown]
  - Product use in unapproved indication [Unknown]

NARRATIVE: CASE EVENT DATE: 20180207
